FAERS Safety Report 11676020 (Version 2)
Quarter: 2015Q4

REPORT INFORMATION
  Report Type: Spontaneous
  Country: SE (occurrence: SE)
  Receive Date: 20151028
  Receipt Date: 20151109
  Transmission Date: 20160304
  Serious: Yes (Life-Threatening)
  Sender: FDA-Public Use
  Company Number: SE-SA-2015SA170500

PATIENT
  Age: 56 Year
  Sex: Female

DRUGS (7)
  1. CLAFORAN [Suspect]
     Active Substance: CEFOTAXIME SODIUM
     Indication: INFECTION
     Route: 065
     Dates: start: 20150905, end: 20150905
  2. SPIRONOLACTONE. [Concomitant]
     Active Substance: SPIRONOLACTONE
  3. LYRICA [Concomitant]
     Active Substance: PREGABALIN
  4. SELOKEN [Concomitant]
     Active Substance: METOPROLOL
  5. ELIQUIS [Concomitant]
     Active Substance: APIXABAN
  6. DALACIN [Concomitant]
     Active Substance: CLINDAMYCIN\CLINDAMYCIN PHOSPHATE
  7. FURIX [Concomitant]
     Active Substance: FUROSEMIDE

REACTIONS (2)
  - Hypersensitivity [Recovered/Resolved]
  - Respiratory distress [Recovered/Resolved]

NARRATIVE: CASE EVENT DATE: 20150905
